FAERS Safety Report 24852624 (Version 1)
Quarter: 2025Q1

REPORT INFORMATION
  Report Type: Spontaneous
  Country: US (occurrence: US)
  Receive Date: 20250116
  Receipt Date: 20250116
  Transmission Date: 20250409
  Serious: No
  Sender: SK LIFE SCIENCE
  Company Number: US-SK LIFE SCIENCE, INC-SKPVG-2024-002617

PATIENT

DRUGS (7)
  1. XCOPRI [Suspect]
     Active Substance: CENOBAMATE
     Indication: Epilepsy
     Route: 048
  2. XCOPRI [Suspect]
     Active Substance: CENOBAMATE
     Dosage: 200 MILLIGRAM, QD
     Route: 048
     Dates: end: 20241102
  3. XCOPRI [Suspect]
     Active Substance: CENOBAMATE
     Dosage: 200 MILLIGRAM, QD
     Route: 048
     Dates: start: 20241108
  4. LACOSAMIDE [Concomitant]
     Active Substance: LACOSAMIDE
     Indication: Product used for unknown indication
     Route: 065
     Dates: start: 20241105
  5. CLOBAZAM [Concomitant]
     Active Substance: CLOBAZAM
     Indication: Product used for unknown indication
     Dosage: 10 MILLIGRAM, ONCE DAILY
     Route: 065
     Dates: start: 20241105
  6. CLOBAZAM [Concomitant]
     Active Substance: CLOBAZAM
     Dosage: 10MG TWO TIMES A DAY
     Route: 065
  7. LEXAPRO [Concomitant]
     Active Substance: ESCITALOPRAM OXALATE
     Indication: Depression
     Dosage: 20 MILLIGRAM, QD
     Route: 065
     Dates: start: 20241105

REACTIONS (4)
  - Product dose omission issue [Recovered/Resolved]
  - Abdominal discomfort [Recovered/Resolved]
  - Feeling abnormal [Recovered/Resolved]
  - Headache [Recovered/Resolved]

NARRATIVE: CASE EVENT DATE: 20241103
